FAERS Safety Report 4401332-3 (Version None)
Quarter: 2004Q3

REPORT INFORMATION
  Report Type: 
  Country: None (occurrence: None)
  Receive Date: 20040907
  Receipt Date: 20040312
  Transmission Date: 20050211
  Serious: No
  Sender: FDA-Public Use
  Company Number: US-BRISTOL-MYERS SQUIBB COMPANY-12532461

PATIENT
  Age: 60 Year
  Sex: Male
  Weight: 102 kg

DRUGS (7)
  1. COUMADIN [Suspect]
     Indication: PULMONARY EMBOLISM
     Dosage: JULY 2003: 5MG AND 7 MG DAILY FOR 6 MONTHS AFTER 6 MONTHS: 2.5MG AND 5MG ALTERNATING DAILY
     Route: 048
     Dates: start: 20030701
  2. BETAPACE [Concomitant]
  3. NIASPAN [Concomitant]
  4. SINOPRIL [Concomitant]
  5. LIPITOR [Concomitant]
  6. ASPIRIN [Concomitant]
  7. AVANDIA [Concomitant]

REACTIONS (2)
  - ATRIAL FIBRILLATION [None]
  - BLOOD MAGNESIUM DECREASED [None]
